FAERS Safety Report 7412865-X (Version None)
Quarter: 2011Q2

REPORT INFORMATION
  Report Type: 
  Country: None (occurrence: None)
  Receive Date: 20110413
  Receipt Date: 20110331
  Transmission Date: 20111010
  Serious: Yes (Hospitalization, Other)
  Sender: FDA-Public Use
  Company Number: B0712359A

PATIENT
  Age: 69 Year
  Sex: Male

DRUGS (3)
  1. NEO-MERCAZOLE TAB [Suspect]
     Route: 048
     Dates: start: 20101222, end: 20110127
  2. IMUREL [Suspect]
     Dosage: 125MG PER DAY
     Route: 048
     Dates: end: 20110202
  3. VALACICLOVIR [Suspect]
     Route: 048
     Dates: start: 20101222, end: 20110127

REACTIONS (4)
  - TOXICITY TO VARIOUS AGENTS [None]
  - NEUTROPENIA [None]
  - COLITIS ULCERATIVE [None]
  - PNEUMONIA [None]
